FAERS Safety Report 6926150-3 (Version None)
Quarter: 2010Q3

REPORT INFORMATION
  Report Type: 
  Country: None (occurrence: None)
  Receive Date: 20100816
  Receipt Date: 20100805
  Transmission Date: 20110219
  Serious: Yes (Other)
  Sender: FDA-Public Use
  Company Number: US-WYE-H16776510

PATIENT
  Age: 58 Year
  Sex: Female
  Weight: 72.64 kg

DRUGS (1)
  1. PRISTIQ [Suspect]
     Dosage: UNKNOWN
     Dates: end: 20100801

REACTIONS (5)
  - EPISTAXIS [None]
  - FACIAL BONES FRACTURE [None]
  - PNEUMONIA [None]
  - PULMONARY FIBROSIS [None]
  - SYNCOPE [None]
